FAERS Safety Report 13191857 (Version 2)
Quarter: 2017Q1

REPORT INFORMATION
  Report Type: Spontaneous
  Country: US (occurrence: US)
  Receive Date: 20170207
  Receipt Date: 20170328
  Transmission Date: 20170428
  Serious: Yes (Hospitalization, Disabling, Other)
  Sender: FDA-Public Use
  Company Number: US-AUROBINDO-AUR-APL-2017-29215

PATIENT
  Age: 54 Year
  Sex: Male

DRUGS (3)
  1. LORAZEPAM. [Suspect]
     Active Substance: LORAZEPAM
     Indication: SCHIZOAFFECTIVE DISORDER
     Dosage: 1 MG, 3 TIMES A DAY
     Route: 048
  2. RISPERIDONE 2MG [Suspect]
     Active Substance: RISPERIDONE
     Indication: SCHIZOAFFECTIVE DISORDER
     Dosage: 2 MG, TWO TIMES A DAY
     Route: 048
  3. LORAZEPAM. [Suspect]
     Active Substance: LORAZEPAM
     Dosage: 0.5 UNK, UNK

REACTIONS (9)
  - Condition aggravated [Recovering/Resolving]
  - Failure to thrive [Recovering/Resolving]
  - Catatonia [Recovering/Resolving]
  - Hypokinesia [Recovering/Resolving]
  - Blunted affect [Recovering/Resolving]
  - Waxy flexibility [Recovering/Resolving]
  - Dysphonia [Recovering/Resolving]
  - Corneal reflex decreased [Recovering/Resolving]
  - Drug withdrawal syndrome [Unknown]
